FAERS Safety Report 7564592-6 (Version None)
Quarter: 2011Q2

REPORT INFORMATION
  Report Type: 
  Country: None (occurrence: None)
  Receive Date: 20110622
  Receipt Date: 20100729
  Transmission Date: 20111010
  Serious: Yes (Death)
  Sender: FDA-Public Use
  Company Number: US-MYLANLABS-2010S1010863

PATIENT
  Age: 82 Year
  Sex: Female
  Weight: 95.26 kg

DRUGS (15)
  1. CARVEDILOL [Concomitant]
  2. FAMOTIDINE [Concomitant]
  3. LEVOTHYROXINE SODIUM [Concomitant]
  4. LISINOPRIL [Concomitant]
  5. AMOXICILLIN [Concomitant]
  6. CLOZAPINE [Suspect]
     Route: 048
     Dates: start: 20061030, end: 20100523
  7. FUROSEMIDE [Concomitant]
  8. SPIRONOLACTONE [Concomitant]
  9. CLOZAPINE [Suspect]
     Indication: INSOMNIA
     Route: 048
     Dates: start: 20061030, end: 20100523
  10. INSULIN [Concomitant]
  11. MULTI-VITAMINS [Concomitant]
  12. SERTRALINE HYDROCHLORIDE [Concomitant]
  13. POTASSIUM [Concomitant]
  14. CLOZAPINE [Suspect]
     Indication: ANXIETY
     Route: 048
     Dates: start: 20061030, end: 20100523
  15. ALBUTEROL SULFATE AUTOHALER [Concomitant]

REACTIONS (1)
  - CEREBROVASCULAR ACCIDENT [None]
